FAERS Safety Report 5217359-8 (Version None)
Quarter: 2007Q1

REPORT INFORMATION
  Report Type: 
  Country: None (occurrence: None)
  Receive Date: 20070124
  Receipt Date: 20060118
  Transmission Date: 20070707
  Serious: No
  Sender: FDA-Public Use
  Company Number: US-GLAXOSMITHKLINE-A0589864A

PATIENT
  Age: 66 Year
  Sex: Female

DRUGS (2)
  1. PAXIL CR [Suspect]
     Dosage: 25MG PER DAY
     Route: 048
     Dates: start: 20050501
  2. CONCURRENT MEDICATIONS [Concomitant]
     Indication: ANXIETY

REACTIONS (3)
  - ANXIETY [None]
  - CRYING [None]
  - DEPRESSIVE SYMPTOM [None]
